FAERS Safety Report 24996812 (Version 1)
Quarter: 2025Q1

REPORT INFORMATION
  Report Type: Spontaneous
  Country: US (occurrence: US)
  Receive Date: 20250221
  Receipt Date: 20250221
  Transmission Date: 20250409
  Serious: Yes (Death)
  Sender: ADC THERAPEUTICS
  Company Number: US-ADC THERAPEUTICS SA-ADC-2025-000043

PATIENT
  Sex: Male

DRUGS (1)
  1. ZYNLONTA [Suspect]
     Active Substance: LONCASTUXIMAB TESIRINE-LPYL
     Indication: Diffuse large B-cell lymphoma
     Route: 042

REACTIONS (2)
  - Death [Fatal]
  - Liver function test increased [Unknown]
